FAERS Safety Report 12236300 (Version 1)
Quarter: 2016Q2

REPORT INFORMATION
  Report Type: Spontaneous
  Country: US (occurrence: US)
  Receive Date: 20160404
  Receipt Date: 20160404
  Transmission Date: 20160815
  Serious: No
  Sender: FDA-Public Use
  Company Number: US-PFIZER INC-2016147104

PATIENT
  Sex: Female

DRUGS (2)
  1. CELEBREX [Suspect]
     Active Substance: CELECOXIB
     Dosage: TAKE 4 DAYS, 2 DAYS NOT, AND THEN AGAIN 4 DAYS
  2. CELEBREX [Suspect]
     Active Substance: CELECOXIB
     Dosage: TAKE 3 DAYS 2 DAYS NOT, 4 DAYS 2 DAYS NO

REACTIONS (2)
  - Intentional product misuse [Unknown]
  - Arthralgia [Unknown]
